FAERS Safety Report 9025995 (Version 1)
Quarter: 2013Q1

REPORT INFORMATION
  Report Type: Spontaneous
  Country: JP (occurrence: JP)
  Receive Date: 20130122
  Receipt Date: 20130122
  Transmission Date: 20140127
  Serious: Yes (Death, Hospitalization, Other)
  Sender: FDA-Public Use
  Company Number: JP-ROCHE-1179361

PATIENT
  Age: 65 Year
  Sex: Male
  Weight: 56 kg

DRUGS (4)
  1. CELLCEPT [Suspect]
     Indication: LIVER TRANSPLANT REJECTION
     Route: 048
  2. PREGABALIN [Suspect]
     Indication: HERPES ZOSTER
     Route: 048
  3. PREGABALIN [Suspect]
     Indication: HERPES ZOSTER
     Route: 048
  4. TACROLIMUS HYDRATE [Concomitant]
     Indication: LIVER TRANSPLANT REJECTION
     Route: 048

REACTIONS (7)
  - Hepatic failure [Fatal]
  - Herpes zoster [Unknown]
  - Renal impairment [Unknown]
  - Hepatic function abnormal [Unknown]
  - Dizziness [Recovered/Resolved]
  - Balance disorder [Recovered/Resolved]
  - Hepatic encephalopathy [Unknown]
